FAERS Safety Report 9642050 (Version 1)
Quarter: 2013Q4

REPORT INFORMATION
  Report Type: Spontaneous
  Country: US (occurrence: US)
  Receive Date: 20131023
  Receipt Date: 20131023
  Transmission Date: 20140711
  Serious: No
  Sender: FDA-Public Use
  Company Number: US-009507513-1310USA007822

PATIENT
  Sex: Female

DRUGS (1)
  1. IMPLANON [Suspect]
     Indication: CONTRACEPTION
     Dosage: 1 STANDARD DOSE OF 1
     Route: 059

REACTIONS (7)
  - Fatigue [Unknown]
  - Menorrhagia [Unknown]
  - Metrorrhagia [Unknown]
  - Weight increased [Unknown]
  - Alopecia [Unknown]
  - Device breakage [Unknown]
  - Menstruation normal [Unknown]
